FAERS Safety Report 8959711 (Version 1)
Quarter: 2012Q4

REPORT INFORMATION
  Report Type: 
  Country: US (occurrence: US)
  Receive Date: 20121212
  Receipt Date: 20121212
  Transmission Date: 20130627
  Serious: No
  Sender: FDA-Public Use
  Company Number: US-TEVA-345743USA

PATIENT
  Sex: Male

DRUGS (1)
  1. BUDESONIDE [Suspect]
     Dosage: 0.5 mg/2ml Inhalation suspension
     Route: 055

REACTIONS (2)
  - Dyspnoea [Unknown]
  - Malaise [Unknown]
